FAERS Safety Report 6170843-5 (Version None)
Quarter: 2009Q2

REPORT INFORMATION
  Report Type: 
  Country: None (occurrence: None)
  Receive Date: 20090427
  Receipt Date: 20090413
  Transmission Date: 20091009
  Serious: Yes (Death, Hospitalization)
  Sender: FDA-Public Use
  Company Number: 2009AP001519

PATIENT
  Age: 74 Year
  Sex: Female

DRUGS (9)
  1. HALOPERIDOL [Suspect]
     Indication: BIPOLAR DISORDER
  2. THORAZINE [Suspect]
     Indication: BIPOLAR DISORDER
  3. NAVANE [Suspect]
     Indication: BIPOLAR DISORDER
  4. TRILAFON [Suspect]
     Indication: BIPOLAR DISORDER
  5. OLANZAPINE [Suspect]
     Indication: BIPOLAR DISORDER
  6. VALPROATE SODIUM [Concomitant]
  7. SERTRALINE HCL [Concomitant]
  8. ACETYLSALICYLIC ACID [Concomitant]
  9. ATENOLOL [Concomitant]

REACTIONS (4)
  - HALLUCINATION [None]
  - MANIA [None]
  - PARKINSONISM [None]
  - TARDIVE DYSKINESIA [None]
